FAERS Safety Report 4603565-X (Version None)
Quarter: 2005Q1

REPORT INFORMATION
  Report Type: 
  Country: None (occurrence: None)
  Receive Date: 20050308
  Receipt Date: 20050303
  Transmission Date: 20050727
  Serious: Yes (Hospitalization, Other)
  Sender: FDA-Public Use
  Company Number: DEWYE474603MAR05

PATIENT
  Age: 76 Year
  Sex: Female

DRUGS (4)
  1. VENLAFAXINE HCL [Suspect]
     Indication: DELUSION
     Dosage: 75 MG PER DAY ORAL
     Route: 048
     Dates: start: 20041015, end: 20041027
  2. VENLAFAXINE HCL [Suspect]
     Indication: DEPRESSION
     Dosage: 75 MG PER DAY ORAL
     Route: 048
     Dates: start: 20041015, end: 20041027
  3. SEROQUEL [Suspect]
     Dosage: 200 MG PER DAY ORAL
     Route: 048
     Dates: start: 20041008, end: 20041027
  4. SOLIAN (AMISULPRIDE) [Concomitant]

REACTIONS (6)
  - ATRIAL FLUTTER [None]
  - CARDIAC FAILURE [None]
  - EJECTION FRACTION DECREASED [None]
  - ELECTROCARDIOGRAM ABNORMAL [None]
  - PLEURAL EFFUSION [None]
  - SUPRAVENTRICULAR TACHYCARDIA [None]
